FAERS Safety Report 5661444-3 (Version None)
Quarter: 2008Q1

REPORT INFORMATION
  Report Type: 
  Country: None (occurrence: None)
  Receive Date: 20080311
  Receipt Date: 20080227
  Transmission Date: 20080703
  Serious: Yes (Hospitalization, Other)
  Sender: FDA-Public Use
  Company Number: BR-PFIZER INC-2008020514

PATIENT
  Weight: 59 kg

DRUGS (5)
  1. CHANTIX [Suspect]
  2. METICORTEN [Concomitant]
  3. LOSARTAN POTASSIUM [Concomitant]
  4. COMBIVENT [Concomitant]
  5. FORASEQ [Concomitant]

REACTIONS (3)
  - ANOSMIA [None]
  - BLINDNESS [None]
  - BLOOD PRESSURE DECREASED [None]
